FAERS Safety Report 13475254 (Version 2)
Quarter: 2017Q2

REPORT INFORMATION
  Report Type: Report from Study
  Country: JP (occurrence: JP)
  Receive Date: 20170424
  Receipt Date: 20170601
  Transmission Date: 20170830
  Serious: Yes (Hospitalization)
  Sender: FDA-Public Use
  Company Number: PHJP2017JP013350

PATIENT
  Age: 57 Year
  Sex: Male

DRUGS (21)
  1. CERTICAN [Suspect]
     Active Substance: EVEROLIMUS
     Dosage: 0.75 MG, QD
     Route: 048
     Dates: start: 20160905, end: 20160930
  2. NEORAL [Concomitant]
     Active Substance: CYCLOSPORINE
     Indication: HEART TRANSPLANT
     Dosage: 200 MG, UNK
     Route: 048
     Dates: start: 20110919, end: 20120902
  3. LIPITOR [Concomitant]
     Active Substance: ATORVASTATIN CALCIUM
     Dosage: 20 MG, UNK
     Route: 048
     Dates: start: 20160706
  4. CERTICAN [Suspect]
     Active Substance: EVEROLIMUS
     Dosage: 0.75 MG, QD
     Route: 048
     Dates: start: 20150905, end: 20151216
  5. CERTICAN [Suspect]
     Active Substance: EVEROLIMUS
     Dosage: 0.5 MG, QD
     Route: 048
     Dates: start: 20151217, end: 20160610
  6. NEORAL [Concomitant]
     Active Substance: CYCLOSPORINE
     Dosage: 190 MG, UNK
     Route: 048
     Dates: start: 20160829, end: 20160905
  7. IMURAN [Concomitant]
     Active Substance: AZATHIOPRINE
     Indication: HEART TRANSPLANT
     Dosage: 50 MG, UNK
     Route: 048
     Dates: start: 20160105, end: 20160401
  8. CERTICAN [Suspect]
     Active Substance: EVEROLIMUS
     Indication: HEART TRANSPLANT
     Dosage: 1.0 MG, QD
     Route: 048
     Dates: start: 20120901
  9. NEORAL [Concomitant]
     Active Substance: CYCLOSPORINE
     Dosage: 100 MG, UNK
     Route: 048
     Dates: start: 20120903, end: 20121201
  10. NEORAL [Concomitant]
     Active Substance: CYCLOSPORINE
     Dosage: 130 MG, UNK
     Route: 048
     Dates: start: 20150905, end: 20151030
  11. RENIVACE [Concomitant]
     Active Substance: ENALAPRIL
     Dosage: 5 MG, UNK
     Route: 048
     Dates: start: 20150905
  12. CERTICAN [Suspect]
     Active Substance: EVEROLIMUS
     Dosage: UNK
     Route: 048
  13. MYCOPHENOLATE MOFETIL. [Concomitant]
     Active Substance: MYCOPHENOLATE MOFETIL
     Indication: HEART TRANSPLANT
     Dosage: 1000 MG, UNK
     Route: 048
     Dates: start: 20110919, end: 20120905
  14. NEORAL [Concomitant]
     Active Substance: CYCLOSPORINE
     Dosage: 140 MG, UNK
     Route: 048
     Dates: start: 20151218, end: 20160610
  15. NEORAL [Concomitant]
     Active Substance: CYCLOSPORINE
     Dosage: 170 MG, UNK
     Route: 048
     Dates: start: 20160620, end: 20160829
  16. LIPITOR [Concomitant]
     Active Substance: ATORVASTATIN CALCIUM
     Dosage: 10 MG, UNK
     Route: 048
     Dates: start: 20150905, end: 20160706
  17. SANDIMMUNE [Concomitant]
     Active Substance: CYCLOSPORINE
     Indication: HEART TRANSPLANT
     Dosage: 30 MG, UNK
     Route: 042
     Dates: start: 20160610, end: 20160620
  18. NEORAL [Concomitant]
     Active Substance: CYCLOSPORINE
     Dosage: 140 MG, UNK
     Route: 048
     Dates: start: 20160906
  19. NEORAL [Concomitant]
     Active Substance: CYCLOSPORINE
     Dosage: 120 MG, UNK
     Route: 048
     Dates: start: 20151031, end: 20151217
  20. RENIVACE [Concomitant]
     Active Substance: ENALAPRIL
     Indication: PROPHYLAXIS
     Dosage: 5 MG, UNK
     Route: 048
     Dates: start: 20110919, end: 20121201
  21. LIPITOR [Concomitant]
     Active Substance: ATORVASTATIN CALCIUM
     Indication: PROPHYLAXIS
     Dosage: 10 MG, UNK
     Route: 048
     Dates: start: 20110919, end: 20121201

REACTIONS (4)
  - Abdominal pain [Unknown]
  - Incisional hernia [Recovered/Resolved]
  - Impaired healing [Unknown]
  - Oedema peripheral [Recovered/Resolved]

NARRATIVE: CASE EVENT DATE: 20151217
